FAERS Safety Report 9500552 (Version 1)
Quarter: 2013Q3

REPORT INFORMATION
  Report Type: Spontaneous
  Country: US (occurrence: None)
  Receive Date: 20130903
  Receipt Date: 20130903
  Transmission Date: 20140515
  Serious: Yes (Death, Life-Threatening, Hospitalization)
  Sender: FDA-Public Use
  Company Number: 1713747-2013-99943

PATIENT
  Age: 84 Year
  Sex: Male
  Weight: 80 kg

DRUGS (6)
  1. SALINE [Suspect]
  2. FRESENIUS 2008K HEMODIALYSIS MACHINE [Concomitant]
  3. BLOODLINES [Concomitant]
  4. DIALYZER [Concomitant]
  5. GRANUFLO [Concomitant]
  6. NATURALYTE [Concomitant]

REACTIONS (2)
  - Bradycardia [None]
  - Cardio-respiratory arrest [None]
